FAERS Safety Report 8815290 (Version 1)
Quarter: 2012Q4

REPORT INFORMATION
  Report Type: 
  Country: US (occurrence: US)
  Receive Date: 20120928
  Receipt Date: 20120928
  Transmission Date: 20130627
  Serious: Yes (Congenital Anomaly, Other)
  Sender: FDA-Public Use
  Company Number: PHHY2012US083013

PATIENT
  Age: 4 Year
  Sex: Female

DRUGS (2)
  1. HEPARIN [Suspect]
     Route: 064
  2. ACETYLSALICYLIC ACID [Suspect]
     Route: 064

REACTIONS (9)
  - Ectopic kidney [Unknown]
  - Kidney malrotation [Unknown]
  - Renal hypoplasia [Unknown]
  - Hypertension [Unknown]
  - Kidney enlargement [Unknown]
  - Congenital diaphragmatic anomaly [Unknown]
  - Left ventricular hypertrophy [Unknown]
  - Patent ductus arteriosus [Unknown]
  - Foetal exposure during pregnancy [Unknown]
